FAERS Safety Report 4930922-4 (Version None)
Quarter: 2006Q1

REPORT INFORMATION
  Report Type: 
  Country: None (occurrence: None)
  Receive Date: 20060227
  Receipt Date: 20060220
  Transmission Date: 20060701
  Serious: Yes (Life-Threatening)
  Sender: FDA-Public Use
  Company Number: 200610715GDS

PATIENT
  Sex: Female

DRUGS (2)
  1. CIPRO [Suspect]
     Indication: INFECTION PROPHYLAXIS
     Dosage: 200 MG, TOTAL DAILY, INTRAVENOUS
     Route: 042
  2. VOLTAREN [Concomitant]

REACTIONS (2)
  - ANAPHYLACTIC REACTION [None]
  - HAEMATEMESIS [None]
